FAERS Safety Report 7733164-2 (Version None)
Quarter: 2011Q3

REPORT INFORMATION
  Report Type: 
  Country: None (occurrence: None)
  Receive Date: 20110907
  Receipt Date: 20110826
  Transmission Date: 20111222
  Serious: Yes (Other)
  Sender: FDA-Public Use
  Company Number: BE-UCBSA-033606

PATIENT
  Sex: Male

DRUGS (4)
  1. ZOCOR [Concomitant]
  2. VIMPAT [Suspect]
     Indication: EPILEPSY
     Route: 048
     Dates: start: 20100701
  3. OLMESARTAN MEDOXOMIL [Concomitant]
  4. VIMPAT [Suspect]
     Indication: CEREBRAL ARTERIOSCLEROSIS
     Route: 048
     Dates: start: 20100701

REACTIONS (1)
  - DEMYELINATING POLYNEUROPATHY [None]
